FAERS Safety Report 8438949-5 (Version None)
Quarter: 2012Q2

REPORT INFORMATION
  Report Type: 
  Country: None (occurrence: None)
  Receive Date: 20120615
  Receipt Date: 20120611
  Transmission Date: 20120825
  Serious: No
  Sender: FDA-Public Use
  Company Number: US-PFIZER INC-2012106366

PATIENT
  Sex: Female
  Weight: 72 kg

DRUGS (3)
  1. AMLODIPINE BESYLATE [Suspect]
     Indication: HYPERTENSION
     Dosage: 10 MG, 1X/DAY
     Route: 048
     Dates: start: 20051222, end: 20051223
  2. ASPIRIN [Concomitant]
     Dosage: UNK
  3. NORVASC [Suspect]
     Indication: HYPERTENSION
     Dosage: 10 MG, ONCE A DAY
     Route: 048
     Dates: start: 20110101, end: 20120427

REACTIONS (6)
  - PALPITATIONS [None]
  - DIZZINESS [None]
  - NODULE [None]
  - HEART RATE INCREASED [None]
  - HYPERTENSION [None]
  - FEELING ABNORMAL [None]
